FAERS Safety Report 6617992-2 (Version None)
Quarter: 2010Q1

REPORT INFORMATION
  Report Type: 
  Country: None (occurrence: None)
  Receive Date: 20100308
  Receipt Date: 20100303
  Transmission Date: 20100710
  Serious: Yes (Death, Life-Threatening, Other)
  Sender: FDA-Public Use
  Company Number: PHHY2010JP12944

PATIENT
  Sex: Female
  Weight: 61 kg

DRUGS (11)
  1. NEORAL [Suspect]
     Indication: LUNG TRANSPLANT
     Dosage: 100-600 MG DAILY
     Route: 048
     Dates: start: 20040301, end: 20040314
  2. NEORAL [Suspect]
     Dosage: 100-250 MG DAILY
     Route: 048
     Dates: start: 20040315, end: 20050627
  3. IMURAN [Suspect]
     Indication: LUNG TRANSPLANT
     Dosage: 100 MG DAILY
     Route: 048
     Dates: start: 20040301
  4. PROGRAF [Suspect]
     Indication: LUNG TRANSPLANT
     Dosage: 15 MG DAILY
     Route: 048
     Dates: start: 20050628
  5. SOL MEDROL [Concomitant]
     Indication: LUNG TRANSPLANT
     Dosage: 250 MG
     Route: 042
     Dates: start: 20040301, end: 20040304
  6. PREDONINE [Concomitant]
     Indication: LUNG TRANSPLANT
     Dosage: 25 MG
     Route: 048
     Dates: start: 20040305
  7. DENOSINE ^TANABE^ [Concomitant]
     Dosage: 480 MG
     Route: 042
     Dates: start: 20040307, end: 20040328
  8. DENOSINE ^TANABE^ [Concomitant]
     Dosage: 3000 MG
     Route: 048
     Dates: start: 20040329, end: 20040521
  9. ZOVIRAX [Concomitant]
     Dosage: 400 MG
     Route: 048
     Dates: start: 20040522
  10. MEVALOTIN [Concomitant]
     Dosage: 10 MG
     Route: 048
     Dates: start: 20040430
  11. DIFLUCAN [Concomitant]
     Dosage: 100 MG
     Route: 048
     Dates: start: 20040324

REACTIONS (8)
  - LUNG TRANSPLANT REJECTION [None]
  - LYMPHADENECTOMY [None]
  - METASTASES TO BONE [None]
  - METASTASES TO LYMPH NODES [None]
  - METASTATIC SQUAMOUS CELL CARCINOMA [None]
  - OBLITERATIVE BRONCHIOLITIS [None]
  - PNEUMONIA [None]
  - RADIOTHERAPY [None]
